FAERS Safety Report 4467456-X (Version None)
Quarter: 2004Q4

REPORT INFORMATION
  Report Type: 
  Country: None (occurrence: None)
  Receive Date: 20041006
  Receipt Date: 20041004
  Transmission Date: 20050328
  Serious: Yes (Life-Threatening, Hospitalization)
  Sender: FDA-Public Use
  Company Number: BR-MERCK-0410BRA00104

PATIENT
  Age: 77 Year
  Sex: Female

DRUGS (5)
  1. CARVEDILOL [Concomitant]
     Route: 065
  2. CILAZAPRIL [Concomitant]
     Route: 065
  3. FUROSEMIDE [Concomitant]
     Route: 065
  4. VIOXX [Suspect]
     Indication: OSTEOARTHRITIS
     Route: 065
     Dates: start: 20010201, end: 20040930
  5. SPIRONOLACTONE [Concomitant]
     Route: 065

REACTIONS (1)
  - ATRIOVENTRICULAR BLOCK [None]
